FAERS Safety Report 17443897 (Version 1)
Quarter: 2020Q1

REPORT INFORMATION
  Report Type: Spontaneous
  Country: JP (occurrence: JP)
  Receive Date: 20200221
  Receipt Date: 20200221
  Transmission Date: 20200409
  Serious: Yes (Other)
  Sender: FDA-Public Use
  Company Number: JP-ASTELLAS-2020JP001746

PATIENT
  Age: 78 Year
  Sex: Female

DRUGS (1)
  1. XOSPATA [Suspect]
     Active Substance: GILTERITINIB
     Indication: ACUTE MYELOID LEUKAEMIA
     Route: 048
     Dates: start: 20200115

REACTIONS (5)
  - Platelet count decreased [Unknown]
  - Neutrophil count decreased [Unknown]
  - Hepatic function abnormal [Unknown]
  - Renal impairment [Unknown]
  - Blood lactate dehydrogenase increased [Unknown]
